FAERS Safety Report 6907299-8 (Version None)
Quarter: 2010Q3

REPORT INFORMATION
  Report Type: 
  Country: None (occurrence: None)
  Receive Date: 20100730
  Receipt Date: 20100715
  Transmission Date: 20110219
  Serious: Yes (Other)
  Sender: FDA-Public Use
  Company Number: US-1182708

PATIENT
  Sex: Female

DRUGS (1)
  1. PHENYLEPHRINE HCL 2.5%OPHTHALAMIC SOLUTION [Suspect]
     Indication: MYDRIASIS
     Dosage: 1GGT OU OPTHALMIC
     Route: 047
     Dates: start: 20100508, end: 20100508

REACTIONS (4)
  - BLOOD PRESSURE INCREASED [None]
  - DRUG EFFECT PROLONGED [None]
  - EYE DISORDER [None]
  - TRANSIENT ISCHAEMIC ATTACK [None]
